FAERS Safety Report 8057082-8 (Version None)
Quarter: 2012Q1

REPORT INFORMATION
  Report Type: 
  Country: None (occurrence: None)
  Receive Date: 20120119
  Receipt Date: 20111118
  Transmission Date: 20120608
  Serious: No
  Sender: FDA-Public Use
  Company Number: US-SANOFI-AVENTIS-2011SA076246

PATIENT
  Sex: Male
  Weight: 109 kg

DRUGS (1)
  1. LASIX [Suspect]
     Route: 065
     Dates: start: 20111101, end: 20111117

REACTIONS (7)
  - MYALGIA [None]
  - HEART RATE ABNORMAL [None]
  - MUSCLE SPASMS [None]
  - MUSCULAR WEAKNESS [None]
  - DIZZINESS [None]
  - RESTLESSNESS [None]
  - TENSION [None]
